FAERS Safety Report 9273334 (Version 1)
Quarter: 2013Q2

REPORT INFORMATION
  Report Type: Spontaneous
  Country: US (occurrence: US)
  Receive Date: 20130506
  Receipt Date: 20130506
  Transmission Date: 20140414
  Serious: Yes (Death, Hospitalization)
  Sender: FDA-Public Use
  Company Number: US-AMGEN-USASP2013028029

PATIENT
  Age: 86 Year
  Sex: Female

DRUGS (5)
  1. ENBREL [Suspect]
     Dosage: UNK
  2. METHOTREXATE SODIUM [Suspect]
     Dosage: UNK
  3. GOLD [Suspect]
     Dosage: UNK
  4. ORENCIA [Suspect]
     Dosage: UNK
  5. PREDNISONE [Concomitant]
     Indication: RHEUMATOID ARTHRITIS
     Dosage: 20 MG, QD
     Dates: end: 20130308

REACTIONS (2)
  - Cellulitis [Fatal]
  - Septic shock [Fatal]
